FAERS Safety Report 6361886-7 (Version None)
Quarter: 2009Q3

REPORT INFORMATION
  Report Type: 
  Country: None (occurrence: None)
  Receive Date: 20090918
  Receipt Date: 20090917
  Transmission Date: 20100115
  Serious: Yes (Other)
  Sender: FDA-Public Use
  Company Number: US-ROXANE LABORATORIES, INC.-2009-RO-00948RO

PATIENT
  Age: 46 Year
  Sex: Female

DRUGS (2)
  1. MIDAZOLAM HCL [Suspect]
     Indication: SEDATION
     Route: 048
  2. FLUMAZENIL [Suspect]
     Indication: PARADOXICAL DRUG REACTION
     Route: 042

REACTIONS (2)
  - PARADOXICAL DRUG REACTION [None]
  - REVERSAL OF SEDATION [None]
